FAERS Safety Report 10026859 (Version 18)
Quarter: 2020Q4

REPORT INFORMATION
  Report Type: Other
  Country: CA (occurrence: CA)
  Receive Date: 20140321
  Receipt Date: 20201113
  Transmission Date: 20210113
  Serious: Yes (Hospitalization, Other)
  Sender: FDA-Public Use
  Company Number: CA-ROCHE-1368922

PATIENT
  Age: 77 Year
  Sex: Male
  Weight: 68 kg

DRUGS (15)
  1. XOLAIR [Suspect]
     Active Substance: OMALIZUMAB
     Indication: ASTHMA
     Route: 058
     Dates: start: 20060927
  2. XOLAIR [Suspect]
     Active Substance: OMALIZUMAB
     Route: 058
     Dates: start: 20170110
  3. XOLAIR [Suspect]
     Active Substance: OMALIZUMAB
     Route: 058
     Dates: start: 20151117
  4. XOLAIR [Suspect]
     Active Substance: OMALIZUMAB
     Route: 058
     Dates: start: 20160630
  5. XOLAIR [Suspect]
     Active Substance: OMALIZUMAB
     Route: 058
     Dates: start: 20161213
  6. XOLAIR [Suspect]
     Active Substance: OMALIZUMAB
     Route: 058
     Dates: start: 20171018
  7. XOLAIR [Suspect]
     Active Substance: OMALIZUMAB
     Route: 058
     Dates: start: 20151015
  8. XOLAIR [Suspect]
     Active Substance: OMALIZUMAB
     Route: 058
     Dates: start: 20131220
  9. XOLAIR [Suspect]
     Active Substance: OMALIZUMAB
     Route: 058
     Dates: start: 20131119
  10. XOLAIR [Suspect]
     Active Substance: OMALIZUMAB
     Route: 058
     Dates: start: 20160405
  11. XOLAIR [Suspect]
     Active Substance: OMALIZUMAB
     Route: 058
     Dates: start: 20160530
  12. PREDNISONE. [Concomitant]
     Active Substance: PREDNISONE
     Indication: PRODUCT USED FOR UNKNOWN INDICATION
     Dosage: 1 CO 50 MG + 2 CO OF 5MG/DAY FOR 4 WEEKS, THEN DECREASING TO BE READJUSTED LATER.
     Route: 048
  13. XOLAIR [Suspect]
     Active Substance: OMALIZUMAB
     Route: 058
     Dates: start: 20131021
  14. XOLAIR [Suspect]
     Active Substance: OMALIZUMAB
     Route: 058
     Dates: start: 20160503
  15. XOLAIR [Suspect]
     Active Substance: OMALIZUMAB
     Route: 058
     Dates: start: 20171213

REACTIONS (23)
  - Body temperature decreased [Unknown]
  - Cataract [Unknown]
  - Malaise [Unknown]
  - Sputum discoloured [Unknown]
  - Renal pain [Unknown]
  - Dyspnoea [Unknown]
  - Influenza [Unknown]
  - Peripheral nerve infection [Unknown]
  - Respiratory rate increased [Unknown]
  - Neurogenic shock [Unknown]
  - Anaemia [Unknown]
  - Asthma [Unknown]
  - Respiratory tract congestion [Unknown]
  - Pneumonia [Unknown]
  - Nasopharyngitis [Unknown]
  - Weight decreased [Unknown]
  - Tooth disorder [Unknown]
  - Productive cough [Unknown]
  - Gait disturbance [Unknown]
  - Nasal congestion [Unknown]
  - Giant cell arteritis [Unknown]
  - Back pain [Unknown]
  - Blood pressure systolic increased [Not Recovered/Not Resolved]

NARRATIVE: CASE EVENT DATE: 20131021
